FAERS Safety Report 24751530 (Version 1)
Quarter: 2024Q4

REPORT INFORMATION
  Report Type: Spontaneous
  Country: US (occurrence: US)
  Receive Date: 20241219
  Receipt Date: 20241219
  Transmission Date: 20250114
  Serious: Yes (Hospitalization)
  Sender: PACIRA
  Company Number: US-ORG100016242-2024000546

PATIENT
  Age: 108 Year
  Sex: Female
  Weight: 23 kg

DRUGS (2)
  1. EXPAREL [Suspect]
     Active Substance: BUPIVACAINE
     Indication: Nerve block
     Dosage: 45MG ON EACH SIDE
     Route: 050
     Dates: start: 20240821, end: 20240821
  2. ROPIVACAINE [Suspect]
     Active Substance: ROPIVACAINE
     Indication: Nerve block
     Dosage: 17MG ON EACH SIDE
     Route: 050
     Dates: start: 20240821, end: 20240821

REACTIONS (2)
  - Labelled drug-drug interaction medication error [Recovered/Resolved]
  - Therapeutic response shortened [Recovered/Resolved]

NARRATIVE: CASE EVENT DATE: 20240821
